FAERS Safety Report 17304737 (Version 1)
Quarter: 2020Q1

REPORT INFORMATION
  Report Type: Spontaneous
  Country: FR (occurrence: FR)
  Receive Date: 20200122
  Receipt Date: 20200122
  Transmission Date: 20200409
  Serious: Yes (Other)
  Sender: FDA-Public Use
  Company Number: FR-TEVA-2020-FR-1171784

PATIENT
  Age: 58 Year
  Sex: Male
  Weight: 54 kg

DRUGS (2)
  1. VANCOMYCINE [Suspect]
     Active Substance: VANCOMYCIN
     Indication: SQUAMOUS CELL CARCINOMA OF THE HYPOPHARYNX
     Route: 042
     Dates: start: 20190326, end: 20190328
  2. CISPLATINE [Suspect]
     Active Substance: CISPLATIN
     Indication: SQUAMOUS CELL CARCINOMA OF THE HYPOPHARYNX
     Dosage: 119 MG
     Route: 042
     Dates: start: 20190319, end: 20190319

REACTIONS (1)
  - Acute kidney injury [Not Recovered/Not Resolved]

NARRATIVE: CASE EVENT DATE: 20190330
